FAERS Safety Report 12148034 (Version 2)
Quarter: 2016Q2

REPORT INFORMATION
  Report Type: Spontaneous
  Country: US (occurrence: US)
  Receive Date: 20160304
  Receipt Date: 20160502
  Transmission Date: 20160815
  Serious: Yes (Hospitalization)
  Sender: FDA-Public Use
  Company Number: US-BAYER-2016-043336

PATIENT
  Age: 44 Year
  Sex: Female
  Weight: 73.47 kg

DRUGS (5)
  1. MIRENA [Suspect]
     Active Substance: LEVONORGESTREL
     Indication: MENORRHAGIA
  2. KLONOPIN [Concomitant]
     Active Substance: CLONAZEPAM
  3. MIRENA [Suspect]
     Active Substance: LEVONORGESTREL
     Indication: CONTRACEPTION
     Dosage: 20 MCG/24HR, CONT
     Route: 015
     Dates: start: 20130220, end: 20131105
  4. IBUPROFEN. [Concomitant]
     Active Substance: IBUPROFEN
  5. AZITHROMYCINE [Concomitant]
     Active Substance: AZITHROMYCIN DIHYDRATE
     Indication: ENDOMETRITIS

REACTIONS (4)
  - Embedded device [None]
  - Depression [None]
  - Device dislocation [None]
  - Anxiety [None]

NARRATIVE: CASE EVENT DATE: 201308
